FAERS Safety Report 5902949-7 (Version None)
Quarter: 2008Q3

REPORT INFORMATION
  Report Type: 
  Country: None (occurrence: None)
  Receive Date: 20080929
  Receipt Date: 20080929
  Transmission Date: 20090109
  Serious: Yes (Other)
  Sender: FDA-Public Use
  Company Number: None

PATIENT
  Age: 73 Year
  Sex: Female
  Weight: 63.5036 kg

DRUGS (1)
  1. SINGULAIR [Suspect]
     Indication: ASTHMA
     Dosage: 10MG ONCE/DAY PO
     Route: 048
     Dates: start: 20020115, end: 20080401

REACTIONS (5)
  - DEPRESSION [None]
  - MENTAL DISORDER [None]
  - RESTLESS LEGS SYNDROME [None]
  - SOMNOLENCE [None]
  - WEIGHT INCREASED [None]
